FAERS Safety Report 4353831-0 (Version None)
Quarter: 2004Q2

REPORT INFORMATION
  Report Type: 
  Country: None (occurrence: None)
  Receive Date: 20040430
  Receipt Date: 20040421
  Transmission Date: 20050107
  Serious: Yes (Life-Threatening, Hospitalization)
  Sender: FDA-Public Use
  Company Number: BE-JNJFOC-20040302014

PATIENT
  Sex: Male

DRUGS (2)
  1. DURAGESIC [Suspect]
  2. TOPAMAX [Concomitant]

REACTIONS (3)
  - COMA [None]
  - INTENTIONAL MISUSE [None]
  - RESPIRATORY RATE DECREASED [None]
